FAERS Safety Report 5142997-0 (Version None)
Quarter: 2006Q4

REPORT INFORMATION
  Report Type: 
  Country: None (occurrence: None)
  Receive Date: 20061103
  Receipt Date: 20061010
  Transmission Date: 20070319
  Serious: Yes (Other)
  Sender: FDA-Public Use
  Company Number: 2006AP05121

PATIENT
  Age: 14388 Day
  Sex: Male
  Weight: 140 kg

DRUGS (1)
  1. CRESTOR [Suspect]
     Indication: HYPERCHOLESTEROLAEMIA
     Route: 048
     Dates: start: 20061005, end: 20061009

REACTIONS (8)
  - CHROMATURIA [None]
  - DYSPNOEA [None]
  - DYSURIA [None]
  - NAUSEA [None]
  - PAIN [None]
  - PYREXIA [None]
  - SEASONAL ALLERGY [None]
  - VOMITING [None]
